FAERS Safety Report 26149341 (Version 1)
Quarter: 2025Q4

REPORT INFORMATION
  Report Type: Other
  Country: GB (occurrence: GB)
  Receive Date: 20251212
  Receipt Date: 20251212
  Transmission Date: 20260117
  Serious: Yes (Other)
  Sender: ZYDUS PHARM
  Company Number: None

PATIENT

DRUGS (3)
  1. TOPIRAMATE [Suspect]
     Active Substance: TOPIRAMATE
     Indication: Product used for unknown indication
     Dosage: 60 MILLIGRAM
     Route: 065
  2. NORTRIPTYLINE [Concomitant]
     Active Substance: NORTRIPTYLINE
     Indication: Migraine
     Dosage: 80 MILLIGRAM, TAKEN FOR TWO MONTHS
     Route: 065
  3. NORTRIPTYLINE [Concomitant]
     Active Substance: NORTRIPTYLINE
     Dosage: 60 MILLIGRAM
     Route: 065

REACTIONS (4)
  - Anger [Recovered/Resolved]
  - Paranoia [Recovered/Resolved]
  - Depression [Not Recovered/Not Resolved]
  - Decreased appetite [Recovered/Resolved]
